FAERS Safety Report 19691095 (Version 1)
Quarter: 2021Q3

REPORT INFORMATION
  Report Type: Spontaneous
  Country: US (occurrence: US)
  Receive Date: 20210812
  Receipt Date: 20210812
  Transmission Date: 20211014
  Serious: Yes (Other)
  Sender: FDA-Public Use
  Company Number: None

PATIENT
  Age: 84 Year
  Sex: Female
  Weight: 60.75 kg

DRUGS (10)
  1. AREDS 2 [Concomitant]
     Active Substance: MINERALS\VITAMINS
  2. CALCIUM [Concomitant]
     Active Substance: CALCIUM
  3. FISH OIL [Concomitant]
     Active Substance: FISH OIL
  4. VITAMIN D3 [Concomitant]
     Active Substance: CHOLECALCIFEROL
  5. ANASTROZOLE. [Suspect]
     Active Substance: ANASTROZOLE
     Indication: BREAST CANCER
     Dosage: ?          QUANTITY:1 TABLET(S);?
     Route: 048
     Dates: start: 20210207, end: 20210408
  6. VITAMIN C [Concomitant]
     Active Substance: ASCORBIC ACID
  7. VITAMIN B12 [Concomitant]
     Active Substance: CYANOCOBALAMIN
  8. BIOTIN [Concomitant]
     Active Substance: BIOTIN
  9. PROBIOTICS [Concomitant]
     Active Substance: PROBIOTICS NOS
  10. SYNTHROID [Concomitant]
     Active Substance: LEVOTHYROXINE SODIUM

REACTIONS (6)
  - Swelling [None]
  - Paraesthesia [None]
  - Pain [None]
  - Arthritis [None]
  - Musculoskeletal stiffness [None]
  - Asthenia [None]

NARRATIVE: CASE EVENT DATE: 20210315
